FAERS Safety Report 9305336 (Version 1)
Quarter: 2013Q2

REPORT INFORMATION
  Report Type: Spontaneous
  Country: DE (occurrence: None)
  Receive Date: 20130520
  Receipt Date: 20130520
  Transmission Date: 20140414
  Serious: Yes (Other)
  Sender: FDA-Public Use
  Company Number: 7211443

PATIENT
  Age: 49 Year
  Sex: Female

DRUGS (2)
  1. EUTHYROX (LEVOTHYROXINE SODIUM)(TABLET)(LEVOTHYROXINE SODIUM) [Suspect]
     Indication: THYROIDECTOMY
     Route: 048
     Dates: start: 200612
  2. VENLAFAXINE (VENLAFAXINE) (VENLAFAXINE) [Concomitant]

REACTIONS (15)
  - Intestinal haemorrhage [None]
  - Paraesthesia [None]
  - Throat tightness [None]
  - Skin hypertrophy [None]
  - Dysuria [None]
  - Asthenia [None]
  - Inflammation [None]
  - Blood uric acid increased [None]
  - Chest pain [None]
  - Muscle spasms [None]
  - Rash [None]
  - Hyperhidrosis [None]
  - Anxiety [None]
  - Restlessness [None]
  - Tachycardia [None]
